FAERS Safety Report 18018143 (Version 1)
Quarter: 2020Q3

REPORT INFORMATION
  Report Type: Spontaneous
  Country: US (occurrence: US)
  Receive Date: 20200713
  Receipt Date: 20200713
  Transmission Date: 20201103
  Serious: Yes (Hospitalization)
  Sender: FDA-Public Use
  Company Number: None

PATIENT
  Age: 91 Year
  Sex: Male

DRUGS (1)
  1. CEFTRIAXONE (CEFTRIAXONE NA 2GM/VIL INJ) [Suspect]
     Active Substance: CEFTRIAXONE SODIUM
     Indication: BACTERAEMIA
     Dosage: ?          OTHER STRENGTH:2GM/VIL;?
     Route: 042
     Dates: start: 20191205, end: 20191231

REACTIONS (1)
  - Drug eruption [None]

NARRATIVE: CASE EVENT DATE: 20191223
